FAERS Safety Report 15918086 (Version 1)
Quarter: 2019Q1

REPORT INFORMATION
  Report Type: Spontaneous
  Country: US (occurrence: US)
  Receive Date: 20190205
  Receipt Date: 20190205
  Transmission Date: 20190417
  Serious: Yes (Hospitalization, Other)
  Sender: FDA-Public Use
  Company Number: US-PFIZER INC-2019043629

PATIENT
  Sex: Female

DRUGS (2)
  1. TIKOSYN [Suspect]
     Active Substance: DOFETILIDE
     Dosage: UNK (0.25)
  2. DOFETILIDE. [Suspect]
     Active Substance: DOFETILIDE
     Dosage: UNK (0.25)

REACTIONS (1)
  - Arrhythmia [Unknown]
